FAERS Safety Report 4650710-6 (Version None)
Quarter: 2005Q2

REPORT INFORMATION
  Report Type: 
  Country: None (occurrence: None)
  Receive Date: 20050503
  Receipt Date: 20050304
  Transmission Date: 20051028
  Serious: Yes (Hospitalization)
  Sender: FDA-Public Use
  Company Number: PHNU2005DE01200

PATIENT
  Sex: Female

DRUGS (9)
  1. LEPONEX / CLOZARIL (CLOZAPINE) [Suspect]
     Indication: SCHIZOAFFECTIVE DISORDER
     Dosage: 12.5 TO 225 MG
     Route: 048
     Dates: start: 20040817, end: 20040907
  2. LEPONEX / CLOZARIL (CLOZAPINE) [Suspect]
     Dates: start: 20040908, end: 20040930
  3. LEPONEX / CLOZARIL (CLOZAPINE) [Suspect]
     Route: 048
     Dates: start: 20041001, end: 20041005
  4. LEPONEX / CLOZARIL (CLOZAPINE) [Suspect]
     Route: 048
     Dates: start: 20041006, end: 20041011
  5. LEPONEX / CLOZARIL (CLOZAPINE) [Suspect]
     Route: 048
     Dates: start: 20041012, end: 20041025
  6. LEPONEX / CLOZARIL (CLOZAPINE) [Suspect]
     Route: 048
     Dates: start: 20041026, end: 20041027
  7. LEPONEX / CLOZARIL (CLOZAPINE) [Suspect]
     Dosage: UNK, UNK
     Route: 048
     Dates: start: 20041028, end: 20041102
  8. ZOLOFT [Concomitant]
     Route: 048
     Dates: start: 20040913, end: 20040927
  9. METOPROLOL SUCCINATE [Concomitant]
     Dates: start: 20020101

REACTIONS (9)
  - ALANINE AMINOTRANSFERASE INCREASED [None]
  - ARTHRALGIA [None]
  - ASPARTATE AMINOTRANSFERASE INCREASED [None]
  - BODY TEMPERATURE INCREASED [None]
  - C-REACTIVE PROTEIN INCREASED [None]
  - FATIGUE [None]
  - LEUKOCYTOSIS [None]
  - PAIN [None]
  - WHITE BLOOD CELL COUNT INCREASED [None]
